FAERS Safety Report 11614672 (Version 1)
Quarter: 2015Q4

REPORT INFORMATION
  Report Type: Spontaneous
  Country: US (occurrence: None)
  Receive Date: 20151008
  Receipt Date: 20151008
  Transmission Date: 20160304
  Serious: No
  Sender: FDA-Public Use
  Company Number: None

PATIENT
  Sex: Male

DRUGS (18)
  1. FONDAPARINUX SOLUTION FOR INJECTION [Concomitant]
     Active Substance: FONDAPARINUX
  2. ZOFRAN [Concomitant]
     Active Substance: ONDANSETRON HYDROCHLORIDE
  3. MULTIV VITAMIN /MINERALS [Concomitant]
  4. SUTENT [Concomitant]
     Active Substance: SUNITINIB MALATE
  5. LEVOTHYROXIN [Concomitant]
     Active Substance: LEVOTHYROXINE
  6. IRON [Concomitant]
     Active Substance: IRON
  7. COUMADIN [Concomitant]
     Active Substance: WARFARIN SODIUM
  8. SYNTHROID [Concomitant]
     Active Substance: LEVOTHYROXINE SODIUM
  9. RANITIDINE [Concomitant]
     Active Substance: RANITIDINE\RANITIDINE HYDROCHLORIDE
  10. PROZAC [Concomitant]
     Active Substance: FLUOXETINE HYDROCHLORIDE
  11. AUGMENTIN [Concomitant]
     Active Substance: AMOXICILLIN\CLAVULANATE POTASSIUM
  12. AMPHETAMINE [Concomitant]
     Active Substance: AMPHETAMINE
  13. SPIRONOLACT [Concomitant]
  14. MILK MAGNS SUS [Concomitant]
  15. INLYTA [Suspect]
     Active Substance: AXITINIB
     Indication: RENAL CANCER
     Route: 048
     Dates: start: 20150812
  16. INLYTA [Suspect]
     Active Substance: AXITINIB
     Indication: HEPATIC CANCER
     Route: 048
     Dates: start: 20150812
  17. PROCHLORPER [Concomitant]
  18. LORAZEPAM. [Concomitant]
     Active Substance: LORAZEPAM

REACTIONS (5)
  - Tongue disorder [None]
  - Insomnia [None]
  - Diarrhoea [None]
  - Nausea [None]
  - Asthenia [None]
